FAERS Safety Report 6088010-2 (Version None)
Quarter: 2009Q1

REPORT INFORMATION
  Report Type: 
  Country: None (occurrence: None)
  Receive Date: 20090219
  Receipt Date: 20050204
  Transmission Date: 20090719
  Serious: Yes (Hospitalization)
  Sender: FDA-Public Use
  Company Number: 2008AL007655

PATIENT
  Age: 73 Year
  Sex: Female
  Weight: 68.9467 kg

DRUGS (21)
  1. DIGOXIN [Suspect]
     Dosage: 0.125MG, M, W, F, PO
     Route: 048
  2. PLAVIX [Concomitant]
  3. ASPIRIN [Concomitant]
  4. LOVASTATIN [Concomitant]
  5. AMIODAR [Concomitant]
  6. AMIODARONE HCL [Concomitant]
  7. RENAGEL [Concomitant]
  8. FUROSEMIDE [Concomitant]
  9. ELAVIL [Concomitant]
  10. CARVEDILOL [Concomitant]
  11. POTASSIUM CHLORIDE [Concomitant]
  12. LOPRESSOR [Concomitant]
  13. PRAVACHOL [Concomitant]
  14. CAPOTEN [Concomitant]
  15. ISOSORBIDE [Concomitant]
  16. HYDRALAZINE HCL [Concomitant]
  17. FERROUS SULFATE TAB [Concomitant]
  18. GLYBURIDE [Concomitant]
  19. CALCITRIOL [Concomitant]
  20. ARANESP [Concomitant]
  21. POLYETHYLENE GLYCOL [Concomitant]

REACTIONS (27)
  - ABDOMINAL PAIN LOWER [None]
  - ANAEMIA [None]
  - BACK PAIN [None]
  - CARDIAC FAILURE [None]
  - CARDIOMYOPATHY [None]
  - CHEST PAIN [None]
  - CHILLS [None]
  - CONDITION AGGRAVATED [None]
  - CYSTITIS [None]
  - DEHYDRATION [None]
  - DYSPNOEA [None]
  - DYSURIA [None]
  - HAEMATOCHEZIA [None]
  - HYPERGLYCAEMIA [None]
  - HYPERTONIC BLADDER [None]
  - MASS [None]
  - MELAENA [None]
  - NAUSEA [None]
  - PRODUCTIVE COUGH [None]
  - PULMONARY OEDEMA [None]
  - RENAL FAILURE [None]
  - SPUTUM DISCOLOURED [None]
  - SUPRAPUBIC PAIN [None]
  - TACHYCARDIA [None]
  - ULCER [None]
  - WEIGHT DECREASED [None]
  - WHEEZING [None]
